FAERS Safety Report 5948219-2 (Version None)
Quarter: 2008Q4

REPORT INFORMATION
  Report Type: 
  Country: None (occurrence: None)
  Receive Date: 20081111
  Receipt Date: 20081028
  Transmission Date: 20090506
  Serious: Yes (Hospitalization)
  Sender: FDA-Public Use
  Company Number: FR-ELI_LILLY_AND_COMPANY-FR200810002117

PATIENT
  Age: 72 Year
  Sex: Female
  Weight: 98 kg

DRUGS (6)
  1. FORTEO [Suspect]
     Indication: OSTEOPOROSIS
     Dosage: 20 UG, DAILY (1/D)
     Route: 058
     Dates: start: 20070501
  2. KENZEN [Concomitant]
     Dosage: UNK, UNKNOWN
     Route: 065
  3. LASIX [Concomitant]
     Dosage: UNK, UNKNOWN
     Route: 065
  4. ALDACTONE [Concomitant]
     Dosage: UNK, UNKNOWN
     Route: 065
  5. FLECAINE [Concomitant]
     Dosage: UNK, UNKNOWN
     Route: 065
  6. LEVOTHYROX [Concomitant]
     Dosage: UNK, UNKNOWN
     Route: 065

REACTIONS (2)
  - MUSCULOSKELETAL PAIN [None]
  - MYOCARDIAL INFARCTION [None]
